FAERS Safety Report 15997283 (Version 1)
Quarter: 2019Q1

REPORT INFORMATION
  Report Type: Spontaneous
  Country: US (occurrence: US)
  Receive Date: 20190222
  Receipt Date: 20190222
  Transmission Date: 20190418
  Serious: Yes (Other)
  Sender: FDA-Public Use
  Company Number: US-SA-2019SA043156

PATIENT
  Age: 66 Year
  Sex: Female
  Weight: 146.5 kg

DRUGS (22)
  1. ATORVASTATIN [Concomitant]
     Active Substance: ATORVASTATIN
     Dosage: UNK UNK, UNK
     Dates: start: 2009
  2. HUMULIN NOS [Concomitant]
     Active Substance: INSULIN HUMAN
     Dosage: UNK UNK, UNK
     Route: 065
     Dates: start: 2009
  3. AMOXICILLIN. [Concomitant]
     Active Substance: AMOXICILLIN
     Dosage: UNK UNK, UNK
     Route: 065
     Dates: start: 2009
  4. HYDROCODONE [Concomitant]
     Active Substance: HYDROCODONE
     Dosage: UNK UNK, UNK
     Route: 065
     Dates: start: 2009
  5. ALLOPURINOL. [Concomitant]
     Active Substance: ALLOPURINOL
     Dosage: UNK UNK, UNK
     Route: 065
     Dates: start: 2009
  6. CITALOPRAM [Concomitant]
     Active Substance: CITALOPRAM HYDROBROMIDE
     Dosage: UNK UNK, UNK
     Route: 065
     Dates: start: 2009
  7. TAXOTERE [Suspect]
     Active Substance: DOCETAXEL
     Indication: BREAST CANCER FEMALE
     Dosage: UNK UNK, Q3W
     Route: 042
     Dates: start: 20160913, end: 20160913
  8. FUROSEMIDE. [Concomitant]
     Active Substance: FUROSEMIDE
     Dosage: UNK UNK, UNK
     Dates: start: 2009
  9. IMODIUM [Concomitant]
     Active Substance: LOPERAMIDE HYDROCHLORIDE
     Dosage: UNK UNK, UNK
     Dates: start: 2009
  10. DEXAMETHASONE. [Concomitant]
     Active Substance: DEXAMETHASONE
     Dosage: UNK UNK, UNK
     Route: 065
     Dates: start: 2009
  11. CHLORHEXIDINE [Concomitant]
     Active Substance: CHLORHEXIDINE
     Dosage: UNK UNK, UNK
  12. ASPIRIN [ACETYLSALICYLIC ACID] [Concomitant]
     Active Substance: ASPIRIN
     Dosage: UNK UNK, UNK
     Route: 065
     Dates: start: 2009
  13. ZARXIO [Concomitant]
     Active Substance: FILGRASTIM-SNDZ
     Dosage: UNK UNK, UNK
     Route: 065
     Dates: start: 2009
  14. CALCIUM + VIT D [Concomitant]
     Active Substance: CALCIUM\VITAMIN D
     Dosage: UNK UNK, UNK
     Route: 065
     Dates: start: 2009
  15. OXYBUTYNIN. [Concomitant]
     Active Substance: OXYBUTYNIN CHLORIDE
     Dosage: UNK UNK, UNK
     Route: 065
     Dates: start: 2009
  16. LANTUS [Concomitant]
     Active Substance: INSULIN GLARGINE
     Dosage: UNK UNK, UNK
     Route: 065
     Dates: start: 2009
  17. PENTOXIFYLLINE. [Concomitant]
     Active Substance: PENTOXIFYLLINE
     Dosage: UNK UNK, UNK
     Route: 065
     Dates: start: 2009
  18. METOPROLOL TARTRATE. [Concomitant]
     Active Substance: METOPROLOL TARTRATE
     Dosage: UNK UNK, UNK
     Route: 065
     Dates: start: 2009
  19. TAXOTERE [Suspect]
     Active Substance: DOCETAXEL
     Dosage: UNK UNK, Q3W
     Route: 042
     Dates: start: 20161114, end: 20161114
  20. NEOSAR [Concomitant]
     Active Substance: CYCLOPHOSPHAMIDE
     Indication: BREAST CANCER FEMALE
     Dosage: UNK UNK, UNK
     Route: 065
  21. LOSARTAN. [Concomitant]
     Active Substance: LOSARTAN
     Dosage: UNK UNK, UNK
     Route: 065
     Dates: start: 2009
  22. PROCHLORPERAZINE. [Concomitant]
     Active Substance: PROCHLORPERAZINE
     Dosage: UNK UNK, UNK
     Dates: start: 2009

REACTIONS (2)
  - Psychological trauma [Unknown]
  - Alopecia [Recovering/Resolving]

NARRATIVE: CASE EVENT DATE: 201611
